FAERS Safety Report 5636099-4 (Version None)
Quarter: 2008Q1

REPORT INFORMATION
  Report Type: 
  Country: None (occurrence: None)
  Receive Date: 20080225
  Receipt Date: 20080214
  Transmission Date: 20080703
  Serious: Yes (Other)
  Sender: FDA-Public Use
  Company Number: US-JNJFOC-20080203824

PATIENT
  Sex: Male
  Weight: 63.5 kg

DRUGS (9)
  1. DURAGESIC-100 [Suspect]
     Indication: PAIN
     Route: 062
  2. LISINOPRIL [Concomitant]
     Indication: HYPERTENSION
     Route: 048
  3. LEXAPRO [Concomitant]
     Indication: DEPRESSION
     Route: 048
  4. LYRICA [Concomitant]
     Indication: PAIN
     Route: 048
  5. ASPIRIN [Concomitant]
     Indication: DRUG USE FOR UNKNOWN INDICATION
     Route: 048
  6. SIMVASTATIN [Concomitant]
     Indication: BLOOD CHOLESTEROL INCREASED
     Route: 048
  7. AMLODIPINE [Concomitant]
     Indication: BLOOD PRESSURE
     Route: 048
  8. NEXIUM [Concomitant]
     Indication: GASTROOESOPHAGEAL REFLUX DISEASE
     Route: 048
  9. VITAMIN CAP [Concomitant]
     Indication: DRUG USE FOR UNKNOWN INDICATION
     Route: 048

REACTIONS (5)
  - BLOOD IRON DECREASED [None]
  - DECREASED APPETITE [None]
  - DEMENTIA [None]
  - INSOMNIA [None]
  - MUSCLE SPASMS [None]
